FAERS Safety Report 8191859-3 (Version None)
Quarter: 2012Q1

REPORT INFORMATION
  Report Type: 
  Country: None (occurrence: None)
  Receive Date: 20120307
  Receipt Date: 20120228
  Transmission Date: 20120608
  Serious: Yes (Other)
  Sender: FDA-Public Use
  Company Number: PHHY2011IN68774

PATIENT
  Sex: Male

DRUGS (2)
  1. GLEEVEC [Suspect]
     Indication: CHRONIC MYELOID LEUKAEMIA
     Dosage: 400 MG, UNK
  2. RADIATION [Concomitant]
     Dates: start: 20120116

REACTIONS (3)
  - LIP AND/OR ORAL CAVITY CANCER [None]
  - NEOPLASM MALIGNANT [None]
  - MOUTH ULCERATION [None]
